FAERS Safety Report 7989259-1 (Version None)
Quarter: 2011Q4

REPORT INFORMATION
  Report Type: 
  Country: None (occurrence: None)
  Receive Date: 20111219
  Receipt Date: 20111205
  Transmission Date: 20120403
  Serious: Yes (Other)
  Sender: FDA-Public Use
  Company Number: US-JNJFOC-20111202121

PATIENT
  Sex: Male
  Weight: 57.61 kg

DRUGS (1)
  1. REMICADE [Suspect]
     Indication: CROHN'S DISEASE
     Dosage: THE PATIENT HAD TWO INFUSIONS
     Route: 042
     Dates: start: 20110929, end: 20111101

REACTIONS (2)
  - FUNGAL TEST POSITIVE [None]
  - PNEUMONIA [None]
